FAERS Safety Report 10027281 (Version 1)
Quarter: 2014Q1

REPORT INFORMATION
  Report Type: Spontaneous
  Country: US (occurrence: US)
  Receive Date: 20140321
  Receipt Date: 20140321
  Transmission Date: 20141002
  Serious: No
  Sender: FDA-Public Use
  Company Number: US-009507513-1403USA002737

PATIENT
  Sex: Female

DRUGS (3)
  1. OXYTROL FOR WOMEN [Suspect]
     Indication: HYPERTONIC BLADDER
     Dosage: UNK
     Dates: start: 20140219, end: 20140219
  2. OXYTROL FOR WOMEN [Suspect]
     Indication: POLLAKIURIA
  3. AZOPT [Concomitant]
     Indication: OPEN ANGLE GLAUCOMA
     Dosage: UNK, TID

REACTIONS (4)
  - Urinary retention [Recovering/Resolving]
  - Abdominal pain [Not Recovered/Not Resolved]
  - Drug effect increased [Recovering/Resolving]
  - Off label use [Unknown]
